FAERS Safety Report 10101454 (Version 1)
Quarter: 2014Q2

REPORT INFORMATION
  Report Type: Spontaneous
  Country: DE (occurrence: None)
  Receive Date: 20140422
  Receipt Date: 20140422
  Transmission Date: 20141212
  Serious: Yes (Hospitalization)
  Sender: FDA-Public Use
  Company Number: 2294035

PATIENT
  Age: 45 Year
  Sex: Male

DRUGS (2)
  1. GEMCITABINE HYDROCHLORIDE [Suspect]
     Indication: SMALL INTESTINE CARCINOMA
     Dosage: 1000 MG/M2 MILLIGRAM(S)/SQ. METER (CYCLICAL)
  2. GEMCITABINE HYDROCHLORIDE [Suspect]
     Indication: METASTASES TO LIVER
     Dosage: 1000 MG/M2 MILLIGRAM(S)/SQ. METER (CYCLICAL)

REACTIONS (6)
  - Nausea [None]
  - Vomiting [None]
  - Haemolytic uraemic syndrome [None]
  - Immune thrombocytopenic purpura [None]
  - Haemodialysis [None]
  - Thrombotic microangiopathy [None]
